FAERS Safety Report 5370626-X (Version None)
Quarter: 2007Q2

REPORT INFORMATION
  Report Type: 
  Country: None (occurrence: None)
  Receive Date: 20070618
  Receipt Date: 20060911
  Transmission Date: 20071010
  Serious: Yes (Hospitalization, Other)
  Sender: FDA-Public Use
  Company Number: PHEH2006US03689

PATIENT
  Age: 54 Year
  Sex: Female
  Weight: 58.2 kg

DRUGS (10)
  1. GLEEVEC [Suspect]
     Indication: CHRONIC MYELOID LEUKAEMIA
     Dosage: 300 MG, QD, ORAL; 400 MG, QD, ORAL; 600 MG, QD, ORAL; 400 MG, QD, ORAL
     Route: 048
     Dates: start: 20060314, end: 20060419
  2. GLEEVEC [Suspect]
     Indication: CHRONIC MYELOID LEUKAEMIA
     Dosage: 300 MG, QD, ORAL; 400 MG, QD, ORAL; 600 MG, QD, ORAL; 400 MG, QD, ORAL
     Route: 048
     Dates: start: 20060419, end: 20060716
  3. GLEEVEC [Suspect]
     Indication: CHRONIC MYELOID LEUKAEMIA
     Dosage: 300 MG, QD, ORAL; 400 MG, QD, ORAL; 600 MG, QD, ORAL; 400 MG, QD, ORAL
     Route: 048
     Dates: start: 20010521
  4. GLEEVEC [Suspect]
     Indication: CHRONIC MYELOID LEUKAEMIA
     Dosage: 300 MG, QD, ORAL; 400 MG, QD, ORAL; 600 MG, QD, ORAL; 400 MG, QD, ORAL
     Route: 048
     Dates: start: 20060719
  5. POTASSIUM CHLORIDE [Concomitant]
  6. PANTOPRAZOLE SODIUM [Concomitant]
  7. HYDROMORPHONE HCL [Concomitant]
  8. METOCLOPRAMIDE [Concomitant]
  9. LAXATIVES (NO INGREDIENTS/SUBSTANCES) [Concomitant]
  10. CALTRATE (CALCIUM CARBONATE) [Concomitant]

REACTIONS (20)
  - ASTHENIA [None]
  - DIARRHOEA [None]
  - DIZZINESS [None]
  - DYSPNOEA [None]
  - FATIGUE [None]
  - HEADACHE [None]
  - LEUKAEMIA RECURRENT [None]
  - MALIGNANT NEOPLASM PROGRESSION [None]
  - MUSCLE SPASMS [None]
  - MUSCULOSKELETAL DISORDER [None]
  - NAUSEA [None]
  - PANCYTOPENIA [None]
  - PHOTOPHOBIA [None]
  - REFLUX OESOPHAGITIS [None]
  - STOMACH DISCOMFORT [None]
  - SUBDURAL HAEMATOMA [None]
  - SUBDURAL HAEMATOMA EVACUATION [None]
  - SWELLING FACE [None]
  - TOOTHACHE [None]
  - VOMITING [None]
